FAERS Safety Report 5274877-4 (Version None)
Quarter: 2007Q1

REPORT INFORMATION
  Report Type: 
  Country: None (occurrence: None)
  Receive Date: 20061208
  Receipt Date: 20060517
  Transmission Date: 20070707
  Serious: No
  Sender: FDA-Public Use
  Company Number: 2006UW09685

PATIENT

DRUGS (1)
  1. CRESTOR [Suspect]
     Dosage: 40 MG PO
     Route: 048

REACTIONS (1)
  - RHABDOMYOLYSIS [None]
